FAERS Safety Report 13028765 (Version 1)
Quarter: 2016Q4

REPORT INFORMATION
  Report Type: Spontaneous
  Country: US (occurrence: US)
  Receive Date: 20161214
  Receipt Date: 20161214
  Transmission Date: 20170207
  Serious: Yes (Hospitalization)
  Sender: FDA-Public Use
  Company Number: US-BIOMARINAP-US-2016-111419

PATIENT
  Age: 11 Year
  Sex: Male
  Weight: 20.7 kg

DRUGS (1)
  1. VIMIZIM [Suspect]
     Active Substance: ELOSULFASE ALFA
     Indication: MUCOPOLYSACCHARIDOSIS IV
     Dosage: 40 MG, QW
     Route: 042
     Dates: start: 20160519

REACTIONS (2)
  - Catheter placement [Unknown]
  - Vascular access complication [Unknown]

NARRATIVE: CASE EVENT DATE: 20161017
